FAERS Safety Report 17144968 (Version 1)
Quarter: 2019Q4

REPORT INFORMATION
  Report Type: Spontaneous
  Country: US (occurrence: US)
  Receive Date: 20191211
  Receipt Date: 20191211
  Transmission Date: 20200122
  Serious: Yes (Life-Threatening)
  Sender: FDA-Public Use
  Company Number: None

PATIENT
  Age: 42 Year
  Sex: Female
  Weight: 70.2 kg

DRUGS (7)
  1. PROBIOTIC [Concomitant]
     Active Substance: PROBIOTICS NOS
  2. ALLEGRA [Concomitant]
     Active Substance: FEXOFENADINE HYDROCHLORIDE
  3. NIGHTTIME COLD AND FLU RELIEF [Suspect]
     Active Substance: ACETAMINOPHEN\DEXTROMETHORPHAN HYDROBROMIDE\DOXYLAMINE SUCCINATE
  4. MULTIVITAMIN [Concomitant]
     Active Substance: VITAMINS
  5. LAMICTAL [Concomitant]
     Active Substance: LAMOTRIGINE
  6. LAMICTAL [Suspect]
     Active Substance: LAMOTRIGINE
     Indication: NASOPHARYNGITIS
     Dosage: ?          QUANTITY:12 OUNCE(S);?
     Route: 048
     Dates: start: 20191208, end: 20191209
  7. ABILIFY [Concomitant]
     Active Substance: ARIPIPRAZOLE

REACTIONS (5)
  - Burning sensation [None]
  - Nasopharyngitis [None]
  - Extrasystoles [None]
  - Erythema [None]
  - Drug interaction [None]

NARRATIVE: CASE EVENT DATE: 20191209
